FAERS Safety Report 10189843 (Version 1)
Quarter: 2014Q2

REPORT INFORMATION
  Report Type: Spontaneous
  Country: US (occurrence: US)
  Receive Date: 20140522
  Receipt Date: 20140522
  Transmission Date: 20141212
  Serious: Yes (Hospitalization)
  Sender: FDA-Public Use
  Company Number: US-SANOFI-AVENTIS-2013SA061547

PATIENT
  Age: 68 Year
  Sex: Female

DRUGS (2)
  1. LANTUS SOLOSTAR [Suspect]
     Indication: TYPE 2 DIABETES MELLITUS
     Dosage: TWICE A DAY 10 AM, 50 PM DOSE:70 UNIT(S)
     Route: 058
  2. SOLOSTAR [Suspect]
     Indication: TYPE 2 DIABETES MELLITUS

REACTIONS (1)
  - Urinary tract infection [Unknown]
